FAERS Safety Report 4510783-8 (Version None)
Quarter: 2004Q4

REPORT INFORMATION
  Report Type: 
  Country: None (occurrence: None)
  Receive Date: 20041122
  Receipt Date: 20041104
  Transmission Date: 20050328
  Serious: Yes (Life-Threatening, Hospitalization)
  Sender: FDA-Public Use
  Company Number: PHHO2004JP15251

PATIENT
  Age: 73 Year
  Sex: Female
  Weight: 54.0234 kg

DRUGS (6)
  1. VISUDYNE [Suspect]
     Indication: MACULAR DEGENERATION
     Dosage: 4.5 MG DAILY IV
     Route: 042
     Dates: start: 20041015, end: 20041015
  2. LIPITOR [Concomitant]
  3. JUVELA [Concomitant]
  4. VITAMEDIN CAPSULE [Concomitant]
  5. NEUER [Concomitant]
  6. NORVASC [Concomitant]

REACTIONS (3)
  - BACK PAIN [None]
  - BODY TEMPERATURE INCREASED [None]
  - PERITONITIS [None]
